FAERS Safety Report 4411870-5 (Version None)
Quarter: 2004Q3

REPORT INFORMATION
  Report Type: 
  Country: None (occurrence: None)
  Receive Date: 20040730
  Receipt Date: 20030610
  Transmission Date: 20050211
  Serious: No
  Sender: FDA-Public Use
  Company Number: US-GLAXOSMITHKLINE-A0411840A

PATIENT
  Age: 61 Year
  Sex: Male

DRUGS (4)
  1. ZANTAC [Suspect]
     Indication: ILL-DEFINED DISORDER
     Dosage: 150MG TWICE PER DAY
     Route: 048
  2. LISINOPRIL [Concomitant]
  3. TEMAZEPAM [Concomitant]
  4. ZOCOR [Concomitant]

REACTIONS (1)
  - DYSGEUSIA [None]
